FAERS Safety Report 5151984-8 (Version None)
Quarter: 2006Q4

REPORT INFORMATION
  Report Type: 
  Country: None (occurrence: None)
  Receive Date: 20061109
  Receipt Date: 20061025
  Transmission Date: 20070319
  Serious: Yes (Other)
  Sender: FDA-Public Use
  Company Number: 149160ISR

PATIENT
  Age: 60 Year
  Sex: Female

DRUGS (3)
  1. FLUCONAZOLE [Suspect]
     Dosage: (50 MG) ORAL
     Route: 048
     Dates: start: 20050101, end: 20050101
  2. ITRACONAZOLE [Suspect]
     Dosage: ORAL
     Route: 048
     Dates: end: 20050101
  3. MULTIVITAMIN AND MINERAL [Concomitant]

REACTIONS (4)
  - BLOOD CREATININE INCREASED [None]
  - BLOOD UREA INCREASED [None]
  - LIVER FUNCTION TEST ABNORMAL [None]
  - MALAISE [None]
